FAERS Safety Report 8391880-6 (Version None)
Quarter: 2012Q2

REPORT INFORMATION
  Report Type: 
  Country: None (occurrence: None)
  Receive Date: 20120529
  Receipt Date: 20120522
  Transmission Date: 20120825
  Serious: Yes (Other)
  Sender: FDA-Public Use
  Company Number: US-GLAXOSMITHKLINE-A0978601A

PATIENT
  Age: 49 Year
  Sex: Female

DRUGS (4)
  1. SERTRALINE HYDROCHLORIDE [Concomitant]
  2. NEURONTIN [Concomitant]
  3. LAMICTAL [Suspect]
     Indication: CONVULSION
     Dosage: 200MG THREE TIMES PER DAY
     Route: 065
     Dates: start: 20110101, end: 20110101
  4. KLONOPIN [Concomitant]

REACTIONS (2)
  - VISION BLURRED [None]
  - PETIT MAL EPILEPSY [None]
